FAERS Safety Report 14700895 (Version 1)
Quarter: 2018Q1

REPORT INFORMATION
  Report Type: Spontaneous
  Country: TW (occurrence: TW)
  Receive Date: 20180330
  Receipt Date: 20180330
  Transmission Date: 20180509
  Serious: Yes (Hospitalization, Other)
  Sender: FDA-Public Use
  Company Number: US-ASTRAZENECA-2018SE37476

PATIENT
  Age: 71 Year
  Sex: Female
  Weight: 49.2 kg

DRUGS (23)
  1. NEXIUM [Suspect]
     Active Substance: ESOMEPRAZOLE MAGNESIUM
     Indication: DUODENAL ULCER
     Route: 048
     Dates: start: 20180129, end: 20180130
  2. CEFTRIAXONE SODIUM. [Concomitant]
     Active Substance: CEFTRIAXONE SODIUM
     Indication: INFLAMMATION
     Route: 042
     Dates: start: 20180131, end: 20180206
  3. PANTOPRAZOLE SODIUM. [Concomitant]
     Active Substance: PANTOPRAZOLE SODIUM
     Indication: GASTROOESOPHAGEAL REFLUX DISEASE
     Route: 042
     Dates: start: 20180130, end: 20180130
  4. AVELOX [Concomitant]
     Active Substance: MOXIFLOXACIN HYDROCHLORIDE
     Indication: INFECTION
     Route: 042
     Dates: start: 20180127, end: 20180129
  5. CATAFLAM [Concomitant]
     Active Substance: DICLOFENAC POTASSIUM
     Indication: PAIN
     Route: 048
     Dates: start: 20180129, end: 20180129
  6. UNASYN [Concomitant]
     Active Substance: AMPICILLIN SODIUM\SULBACTAM SODIUM
     Indication: INFECTION
     Route: 042
     Dates: start: 20180127, end: 20180130
  7. DEXTROMETHORPHAN HYDROBROMIDE. [Concomitant]
     Active Substance: DEXTROMETHORPHAN HYDROBROMIDE
     Indication: COUGH
     Route: 048
     Dates: start: 20180128, end: 20180222
  8. PLACEBO [Suspect]
     Active Substance: UNSPECIFIED INGREDIENT
     Indication: CLOSTRIDIUM DIFFICILE IMMUNISATION
     Dosage: SINGLE DOSE
     Route: 030
     Dates: start: 20171222, end: 20171222
  9. ACTEIN [Concomitant]
     Indication: OVERDOSE
     Route: 048
     Dates: start: 20180127, end: 20180222
  10. BISACODYL. [Concomitant]
     Active Substance: BISACODYL
     Indication: CONSTIPATION
     Dosage: 10 MG, STAT
     Route: 054
     Dates: start: 20180129, end: 20180129
  11. RASITOL [Concomitant]
     Indication: OEDEMA
     Route: 048
     Dates: start: 20180201, end: 20180203
  12. IWELL [Concomitant]
     Indication: DUODENAL ULCER
     Route: 048
     Dates: start: 20180129, end: 20180129
  13. POTASSIUM GLUCONATE [Concomitant]
     Active Substance: POTASSIUM GLUCONATE
     Indication: HYPOKALAEMIA
     Route: 048
     Dates: start: 20180201, end: 20180204
  14. PARIET [Concomitant]
     Active Substance: RABEPRAZOLE SODIUM
     Indication: DUODENAL ULCER
     Route: 048
     Dates: start: 20180131, end: 20180209
  15. FINSKA [Concomitant]
     Indication: SEASONAL ALLERGY
     Route: 048
     Dates: start: 20180128, end: 20180222
  16. DEPYRETIN [Concomitant]
     Active Substance: ACETAMINOPHEN
     Indication: PAIN
     Route: 048
     Dates: start: 20180127, end: 20180202
  17. ACETYLSALICYLATE LYSINE [Concomitant]
     Active Substance: ASPIRIN DL-LYSINE
     Indication: PYREXIA
     Dosage: 500 MG, AS ORDER
     Route: 042
     Dates: start: 20180127, end: 20180127
  18. METOCLOPRAMIDE HYDROCHLORIDE. [Concomitant]
     Active Substance: METOCLOPRAMIDE HYDROCHLORIDE
     Indication: VOMITING
     Route: 042
     Dates: start: 20180127, end: 20180131
  19. TRAMADOL. [Concomitant]
     Active Substance: TRAMADOL
     Indication: PAIN
     Dosage: 100 MG, AS ORDER
     Route: 042
     Dates: start: 20180127, end: 20180127
  20. ULTRACET [Concomitant]
     Active Substance: ACETAMINOPHEN\TRAMADOL HYDROCHLORIDE
     Indication: PAIN
     Route: 048
     Dates: start: 20180129, end: 20180129
  21. SOLAXIN [Concomitant]
     Indication: MUSCULOSKELETAL PAIN
     Route: 048
     Dates: start: 20180128, end: 20180129
  22. RASITOL [Concomitant]
     Indication: OEDEMA
     Route: 048
     Dates: start: 20180131, end: 20180201
  23. DOXAZOSIN MESILATE [Concomitant]
     Active Substance: DOXAZOSIN MESYLATE
     Indication: HYPERTENSION
     Route: 048
     Dates: start: 20180202, end: 20180222

REACTIONS (3)
  - Anaemia [Unknown]
  - Acute kidney injury [Recovering/Resolving]
  - Colitis [Unknown]

NARRATIVE: CASE EVENT DATE: 20180204
